FAERS Safety Report 7179923-9 (Version None)
Quarter: 2010Q4

REPORT INFORMATION
  Report Type: 
  Country: None (occurrence: None)
  Receive Date: 20101221
  Receipt Date: 20101122
  Transmission Date: 20110411
  Serious: Yes (Hospitalization)
  Sender: FDA-Public Use
  Company Number: CO-PFIZER INC-CO-WYE-H18391810

PATIENT
  Sex: Female

DRUGS (11)
  1. ENBREL [Suspect]
     Indication: RHEUMATOID ARTHRITIS
     Dosage: 50 MG, WEEKLY
     Route: 058
     Dates: start: 20090101, end: 20101017
  2. ADVIL [Suspect]
     Indication: ARTHRALGIA
     Dosage: 500-1000 MG AS NEEDED
     Dates: start: 19930101
  3. CALCITRIOL [Concomitant]
     Dosage: DOSE NOT PROVIDED
     Dates: start: 20020101
  4. GINKGO ^SYXYL^ [Concomitant]
     Indication: PAIN IN EXTREMITY
  5. GINKGO ^SYXYL^ [Concomitant]
     Indication: VARICOSE VEIN
  6. CALCIUM CARBONATE [Concomitant]
     Dosage: DOSE NOT PROVIDED
     Dates: start: 20020101
  7. ARALEN [Concomitant]
  8. ARAVA [Concomitant]
     Indication: RHEUMATOID ARTHRITIS
     Dosage: 20 MG, 1X/DAY
     Dates: start: 20070101
  9. ACETAMINOPHEN [Concomitant]
     Indication: ARTHRALGIA
     Dosage: 500 MG, AS NEEDED
  10. LEVOTHYROXINE [Concomitant]
     Indication: HYPOTHYROIDISM
     Dosage: 50 UG, 1X/DAY
     Dates: start: 19840101
  11. OMEPRAZOLE [Concomitant]
     Dosage: DOSE NOT PROVIDED

REACTIONS (4)
  - BLOOD GLUCOSE INCREASED [None]
  - BLOOD PRESSURE INCREASED [None]
  - CHRONIC SINUSITIS [None]
  - CONDITION AGGRAVATED [None]
